FAERS Safety Report 6271935-2 (Version None)
Quarter: 2009Q3

REPORT INFORMATION
  Report Type: 
  Country: None (occurrence: None)
  Receive Date: 20090717
  Receipt Date: 20070821
  Transmission Date: 20100115
  Serious: Yes (Death, Other)
  Sender: FDA-Public Use
  Company Number: US-ASTRAZENECA-2006UW11812

PATIENT
  Sex: Female
  Weight: 49.9 kg

DRUGS (23)
  1. SEROQUEL [Suspect]
     Indication: ANXIETY
     Dosage: 50 MG ONE IN MORNING, ONE IN EVENING, TWO AT NIGHT
     Route: 048
     Dates: start: 20040715
  2. SEROQUEL [Suspect]
     Indication: DEPRESSION
     Dosage: 50 MG ONE IN MORNING, ONE IN EVENING, TWO AT NIGHT
     Route: 048
     Dates: start: 20040715
  3. SEROQUEL [Suspect]
     Indication: BIPOLAR DISORDER
     Dosage: 50 MG ONE IN MORNING, ONE IN EVENING, TWO AT NIGHT
     Route: 048
     Dates: start: 20040715
  4. SEROQUEL [Suspect]
     Route: 048
     Dates: start: 20041108, end: 20050209
  5. SEROQUEL [Suspect]
     Route: 048
     Dates: start: 20041108, end: 20050209
  6. SEROQUEL [Suspect]
     Route: 048
     Dates: start: 20041108, end: 20050209
  7. SEROQUEL [Suspect]
     Route: 048
     Dates: start: 20041110
  8. SEROQUEL [Suspect]
     Route: 048
     Dates: start: 20041110
  9. SEROQUEL [Suspect]
     Route: 048
     Dates: start: 20041110
  10. SEROQUEL [Suspect]
     Route: 048
     Dates: start: 20041227, end: 20050209
  11. SEROQUEL [Suspect]
     Route: 048
     Dates: start: 20041227, end: 20050209
  12. SEROQUEL [Suspect]
     Route: 048
     Dates: start: 20041227, end: 20050209
  13. SEROQUEL [Suspect]
     Route: 048
     Dates: start: 20041227, end: 20050209
  14. SEROQUEL [Suspect]
     Route: 048
     Dates: start: 20041227, end: 20050209
  15. SEROQUEL [Suspect]
     Route: 048
     Dates: start: 20041227, end: 20050209
  16. SEROQUEL [Suspect]
     Route: 048
     Dates: start: 20041227
  17. SEROQUEL [Suspect]
     Route: 048
     Dates: start: 20041227
  18. SEROQUEL [Suspect]
     Route: 048
     Dates: start: 20041227
  19. ZYPREXA [Suspect]
  20. RISPERDAL [Concomitant]
  21. REVIA [Concomitant]
     Dates: start: 20041031
  22. WELLBUTRIN [Concomitant]
     Dosage: 150 MG ONE AT NIGHT, 150 MG IN MORNING
     Dates: start: 20041124
  23. TRAZODONE [Concomitant]
     Dosage: 25 MG, 50 MG IN MORNING
     Dates: start: 20050120

REACTIONS (2)
  - DEATH [None]
  - PANCREATITIS [None]
